FAERS Safety Report 5609389-9 (Version None)
Quarter: 2008Q1

REPORT INFORMATION
  Report Type: 
  Country: None (occurrence: None)
  Receive Date: 20080131
  Receipt Date: 20080129
  Transmission Date: 20080703
  Serious: Yes (Other)
  Sender: FDA-Public Use
  Company Number: A0677168A

PATIENT
  Age: 55 Year
  Sex: Female
  Weight: 84.1 kg

DRUGS (2)
  1. ALLI [Suspect]
     Indication: WEIGHT LOSS DIET
     Dosage: 60MG THREE TIMES PER DAY
     Route: 048
     Dates: start: 20070701
  2. NO CONCURRENT MEDICATION [Concomitant]

REACTIONS (11)
  - ANAPHYLACTIC SHOCK [None]
  - ANOREXIA [None]
  - DIARRHOEA [None]
  - FACE OEDEMA [None]
  - LARYNGEAL OEDEMA [None]
  - LYMPHADENOPATHY [None]
  - NAUSEA [None]
  - RASH [None]
  - RETCHING [None]
  - URTICARIA [None]
  - VOMITING [None]
